FAERS Safety Report 8947980 (Version 1)
Quarter: 2012Q4

REPORT INFORMATION
  Report Type: 
  Country: US (occurrence: US)
  Receive Date: 20121204
  Receipt Date: 20121204
  Transmission Date: 20130627
  Serious: No
  Sender: FDA-Public Use
  Company Number: US-ASTRAZENECA-2012SE87257

PATIENT
  Age: 34 Year
  Sex: Female

DRUGS (1)
  1. SEROQUEL XR [Suspect]
     Indication: ANXIETY
     Route: 048

REACTIONS (2)
  - Aversion [Unknown]
  - Off label use [Unknown]
